FAERS Safety Report 24641725 (Version 1)
Quarter: 2024Q4

REPORT INFORMATION
  Report Type: Spontaneous
  Country: DE (occurrence: DE)
  Receive Date: 20241120
  Receipt Date: 20241120
  Transmission Date: 20250115
  Serious: Yes (Hospitalization, Other)
  Sender: REGENERON
  Company Number: DE-BAYER-2024A163004

PATIENT
  Age: 78 Year
  Sex: Male

DRUGS (1)
  1. EYLEA HD [Suspect]
     Active Substance: AFLIBERCEPT
     Indication: Retinal neovascularisation
     Dosage: 8 MG, EVERY 6-7 WEEKS ((LAST INJ (THIRD ADMINISTRATION) ON 24-OCT-2024 BOTH EYES), 114.3 MG/ML, SOL
     Dates: start: 20240724, end: 20241024

REACTIONS (4)
  - Vitreous opacities [Unknown]
  - Endophthalmitis [Unknown]
  - Vision blurred [Recovering/Resolving]
  - Eye pain [Recovering/Resolving]

NARRATIVE: CASE EVENT DATE: 20241024
